FAERS Safety Report 24748174 (Version 4)
Quarter: 2025Q1

REPORT INFORMATION
  Report Type: Spontaneous
  Country: US (occurrence: US)
  Receive Date: 20241218
  Receipt Date: 20250211
  Transmission Date: 20250408
  Serious: No
  Sender: PFIZER
  Company Number: US-PFIZER INC-202400326092

PATIENT
  Age: 37 Year
  Sex: Female

DRUGS (3)
  1. CIBINQO [Suspect]
     Active Substance: ABROCITINIB
     Indication: Dermatitis atopic
     Dosage: 100MG, TAKE 1 TABLET BY MOUTH DAILY
     Route: 048
     Dates: start: 20241213
  2. VITAMINS [Concomitant]
     Active Substance: VITAMINS
  3. VALACYCLOVIR HYDROCHLORIDE [Concomitant]
     Active Substance: VALACYCLOVIR HYDROCHLORIDE

REACTIONS (2)
  - Sleep disorder [Recovered/Resolved]
  - Product dose omission issue [Unknown]
